FAERS Safety Report 5605954-3 (Version None)
Quarter: 2008Q1

REPORT INFORMATION
  Report Type: 
  Country: None (occurrence: None)
  Receive Date: 20080123
  Receipt Date: 20080108
  Transmission Date: 20080703
  Serious: Yes (Disabling)
  Sender: FDA-Public Use
  Company Number: 100#03#2008-00274

PATIENT
  Age: 79 Year
  Sex: Female

DRUGS (5)
  1. ERYTHROMYCIN [Suspect]
     Indication: LOWER RESPIRATORY TRACT INFECTION
     Dosage: 500 MG; ORAL
     Route: 048
     Dates: start: 20071214, end: 20071218
  2. OMEPRAZOLE [Concomitant]
  3. PERINDOPRIL ERBUMINE [Concomitant]
  4. SERETIDE (FLUTICASONE, SALMETEROL) [Concomitant]
  5. SPIRIVA [Concomitant]

REACTIONS (1)
  - DYSPNOEA [None]
